FAERS Safety Report 18485139 (Version 2)
Quarter: 2020Q4

REPORT INFORMATION
  Report Type: Spontaneous
  Country: FR (occurrence: FR)
  Receive Date: 20201110
  Receipt Date: 20201218
  Transmission Date: 20210114
  Serious: Yes (Hospitalization, Other)
  Sender: FDA-Public Use
  Company Number: FR-PFIZER INC-2020430490

PATIENT
  Age: 57 Year
  Sex: Female
  Weight: 49.2 kg

DRUGS (1)
  1. FRAGMINE [Suspect]
     Active Substance: DALTEPARIN SODIUM
     Indication: ISCHAEMIC STROKE
     Dosage: 1 DF, 1X/DAY
     Route: 058
     Dates: start: 20200921, end: 20201004

REACTIONS (3)
  - Pulmonary embolism [Recovering/Resolving]
  - Drug ineffective [Recovered/Resolved]
  - Deep vein thrombosis [Recovering/Resolving]

NARRATIVE: CASE EVENT DATE: 20200923
